FAERS Safety Report 12407873 (Version 2)
Quarter: 2016Q2

REPORT INFORMATION
  Report Type: Spontaneous
  Country: US (occurrence: US)
  Receive Date: 20160526
  Receipt Date: 20160603
  Transmission Date: 20160815
  Serious: Yes (Hospitalization)
  Sender: FDA-Public Use
  Company Number: US-GLAXOSMITHKLINE-US2016075233

PATIENT
  Sex: Male

DRUGS (1)
  1. POTIGA [Suspect]
     Active Substance: EZOGABINE
     Indication: PRODUCT USED FOR UNKNOWN INDICATION
     Dosage: 400 MG, BID
     Dates: start: 201310

REACTIONS (4)
  - Psychotic disorder [Recovered/Resolved]
  - Off label use [Unknown]
  - Adverse event [Unknown]
  - Extra dose administered [Unknown]
